FAERS Safety Report 4382451-7 (Version None)
Quarter: 2004Q2

REPORT INFORMATION
  Report Type: 
  Country: None (occurrence: None)
  Receive Date: 20040617
  Receipt Date: 20040519
  Transmission Date: 20050107
  Serious: Yes (Hospitalization, Other)
  Sender: FDA-Public Use
  Company Number: ENT 2004-0099

PATIENT
  Age: 68 Year
  Sex: Female

DRUGS (6)
  1. COMTAN [Suspect]
     Indication: PARKINSON'S DISEASE
     Dosage: 4 TABLETS QD ORAL
     Route: 048
     Dates: start: 19960101
  2. SINEMET [Concomitant]
  3. COGENTIN [Concomitant]
  4. AVANZA [Concomitant]
  5. SEROQUEL [Concomitant]
  6. TEMAZE [Concomitant]

REACTIONS (4)
  - CHROMATURIA [None]
  - FALL [None]
  - HALLUCINATION [None]
  - OSTEOPOROSIS [None]
